FAERS Safety Report 4619490-4 (Version None)
Quarter: 2005Q1

REPORT INFORMATION
  Report Type: 
  Country: None (occurrence: None)
  Receive Date: 20050325
  Receipt Date: 20050315
  Transmission Date: 20050727
  Serious: Yes (Hospitalization)
  Sender: FDA-Public Use
  Company Number: BR-JNJFOC-20050305258

PATIENT
  Age: 5 Year
  Sex: Female

DRUGS (3)
  1. HALDOL [Suspect]
     Indication: SCHIZOPHRENIA
  2. PROMETHAZINE [Concomitant]
     Indication: SCHIZOPHRENIA
  3. LITHIUM CARBONATE CAP [Concomitant]
     Indication: SCHIZOPHRENIA
     Dosage: ^CHRONIC USE^

REACTIONS (5)
  - DYSPHONIA [None]
  - MALAISE [None]
  - SOMNOLENCE [None]
  - TREMOR [None]
  - VOMITING [None]
